FAERS Safety Report 20363041 (Version 3)
Quarter: 2022Q2

REPORT INFORMATION
  Report Type: Spontaneous
  Country: JP (occurrence: JP)
  Receive Date: 20220121
  Receipt Date: 20220512
  Transmission Date: 20220720
  Serious: Yes (Other)
  Sender: FDA-Public Use
  Company Number: JP-BAYER-2022A010301

PATIENT
  Age: 83 Year
  Sex: Female
  Weight: 52 kg

DRUGS (7)
  1. ADEMPAS [Suspect]
     Active Substance: RIOCIGUAT
     Indication: Pulmonary hypertension
     Dosage: 3 MG, DAILY
     Route: 048
     Dates: start: 20220113
  2. FUROSEMIDE [Concomitant]
     Active Substance: FUROSEMIDE
     Dosage: 30 MG
  3. FUROSEMIDE [Concomitant]
     Active Substance: FUROSEMIDE
     Dosage: 20 MG
  4. FLUITRAN [BENZALKONIUM CHLORIDE;SODIUM CHLORIDE] [Concomitant]
     Dosage: 2 MG
  5. FLUITRAN [BENZALKONIUM CHLORIDE;SODIUM CHLORIDE] [Concomitant]
     Dosage: 1 MG
  6. TORSEMIDE [Concomitant]
     Active Substance: TORSEMIDE
     Dosage: 16MG
  7. AZOSEMIDE [Concomitant]
     Active Substance: AZOSEMIDE
     Dosage: 60 MG

REACTIONS (7)
  - Renal impairment [Recovering/Resolving]
  - Amylase increased [Recovering/Resolving]
  - Dehydration [Recovering/Resolving]
  - Pancreatic cyst [Not Recovered/Not Resolved]
  - Blood uric acid increased [Recovering/Resolving]
  - Blood urea increased [Recovering/Resolving]
  - Blood creatinine increased [Recovering/Resolving]

NARRATIVE: CASE EVENT DATE: 20220117
